FAERS Safety Report 4999736-3 (Version None)
Quarter: 2006Q2

REPORT INFORMATION
  Report Type: 
  Country: None (occurrence: None)
  Receive Date: 20060511
  Receipt Date: 20060509
  Transmission Date: 20061013
  Serious: Yes (Other)
  Sender: FDA-Public Use
  Company Number: US-GLAXOSMITHKLINE-A0604879A

PATIENT
  Age: 48 Year
  Sex: Female

DRUGS (1)
  1. COREG [Suspect]
     Dosage: 3.125MG TWICE PER DAY
     Route: 048

REACTIONS (3)
  - HYSTERECTOMY [None]
  - MENSTRUATION IRREGULAR [None]
  - POSTMENOPAUSAL HAEMORRHAGE [None]
